FAERS Safety Report 19185573 (Version 1)
Quarter: 2021Q2

REPORT INFORMATION
  Report Type: Spontaneous
  Country: US (occurrence: US)
  Receive Date: 20210427
  Receipt Date: 20210427
  Transmission Date: 20210717
  Serious: No
  Sender: FDA-Public Use
  Company Number: US-ELI_LILLY_AND_COMPANY-US202104011444

PATIENT
  Age: 34 Year
  Sex: Female

DRUGS (1)
  1. TRULICITY [Suspect]
     Active Substance: DULAGLUTIDE
     Indication: TYPE 2 DIABETES MELLITUS
     Dosage: 3 MG, WEEKLY (1/W)
     Route: 058
     Dates: start: 202101

REACTIONS (1)
  - Injection site hypersensitivity [Unknown]

NARRATIVE: CASE EVENT DATE: 20210413
